FAERS Safety Report 4357692-5 (Version None)
Quarter: 2004Q2

REPORT INFORMATION
  Report Type: 
  Country: None (occurrence: None)
  Receive Date: 20040511
  Receipt Date: 20040427
  Transmission Date: 20050107
  Serious: Yes (Death, Life-Threatening, Hospitalization)
  Sender: FDA-Public Use
  Company Number: 02100-JPN-04-0106

PATIENT
  Age: 59 Year
  Sex: Male

DRUGS (6)
  1. CILOSTAZOL [Suspect]
     Indication: CEREBRAL INFARCTION
     Dosage: 100 MG, ORAL
     Route: 048
     Dates: start: 20030926, end: 20040405
  2. ETHYL ICOSAPENTATE [Suspect]
     Dosage: 600 MG, ORAL
     Route: 048
     Dates: end: 20040405
  3. ASPIRIN [Suspect]
     Dosage: 81 MG, ORAL
     Route: 048
     Dates: end: 20040405
  4. AMLODIPINE BESYLATE [Concomitant]
  5. RANITIDINE HYDROCHLORIDE [Concomitant]
  6. SERRAPEPTASE [Concomitant]

REACTIONS (11)
  - ACTIVATED PARTIAL THROMBOPLASTIN TIME PROLONGED [None]
  - BRAIN HERNIATION [None]
  - BRAIN OEDEMA [None]
  - CEREBRAL HAEMORRHAGE [None]
  - COAGULOPATHY [None]
  - COMA [None]
  - HEADACHE [None]
  - PLATELET COUNT DECREASED [None]
  - PROTHROMBIN TIME PROLONGED [None]
  - SUBDURAL HAEMATOMA [None]
  - VOMITING [None]
